FAERS Safety Report 21248896 (Version 1)
Quarter: 2022Q3

REPORT INFORMATION
  Report Type: Spontaneous
  Country: US (occurrence: US)
  Receive Date: 20220824
  Receipt Date: 20220824
  Transmission Date: 20221027
  Serious: No
  Sender: FDA-Public Use
  Company Number: US-ANIPHARMA-2022-US-007742

PATIENT
  Sex: Female

DRUGS (2)
  1. ANASTROZOLE [Suspect]
     Active Substance: ANASTROZOLE
     Indication: Product used for unknown indication
     Route: 065
  2. IBRANCE [Suspect]
     Active Substance: PALBOCICLIB
     Indication: Product used for unknown indication
     Dosage: TAKE 1 CAPSULE DAILY FOR 21 DAYS THEN 7 DAYS OFF
     Route: 065
     Dates: start: 20220223

REACTIONS (3)
  - Somnolence [Unknown]
  - Skin exfoliation [Recovered/Resolved]
  - Feeling abnormal [Unknown]
